FAERS Safety Report 10082171 (Version 1)
Quarter: 2014Q2

REPORT INFORMATION
  Report Type: Spontaneous
  Country: US (occurrence: US)
  Receive Date: 20140416
  Receipt Date: 20140416
  Transmission Date: 20141212
  Serious: Yes (Other)
  Sender: FDA-Public Use
  Company Number: US-BAYER-2014-054720

PATIENT
  Age: 46 Year
  Sex: Female

DRUGS (2)
  1. BAYER ASPIRIN REGIMEN ADULT LOW STRENGTH [Suspect]
     Indication: CARDIAC DISORDER
     Dosage: 1 DF, QD
  2. BAYER ASPIRIN REGIMEN ADULT LOW STRENGTH [Suspect]
     Indication: CARDIAC DISORDER
     Dosage: 1 DF, BID

REACTIONS (2)
  - Myocardial infarction [None]
  - Off label use [None]
